FAERS Safety Report 9461769 (Version 1)
Quarter: 2013Q3

REPORT INFORMATION
  Report Type: Spontaneous
  Country: AU (occurrence: AU)
  Receive Date: 20130816
  Receipt Date: 20130816
  Transmission Date: 20140515
  Serious: Yes (Other)
  Sender: FDA-Public Use
  Company Number: AU-SANOFI-AVENTIS-2013SA080729

PATIENT
  Age: 74 Year
  Sex: Female
  Weight: 69 kg

DRUGS (16)
  1. AMIODARONE HYDROCHLORIDE [Suspect]
     Indication: PRODUCT USED FOR UNKNOWN INDICATION
     Route: 065
  2. PLAVIX [Suspect]
     Indication: PRODUCT USED FOR UNKNOWN INDICATION
     Route: 065
  3. ASPIRIN [Suspect]
     Indication: PRODUCT USED FOR UNKNOWN INDICATION
     Route: 065
     Dates: start: 20120409
  4. CEFAZOLIN [Suspect]
     Indication: PRODUCT USED FOR UNKNOWN INDICATION
     Route: 065
     Dates: start: 20120410, end: 20120510
  5. ATORVASTATIN [Suspect]
     Indication: PRODUCT USED FOR UNKNOWN INDICATION
     Route: 065
     Dates: start: 20120409
  6. METOCLOPRAMIDE HYDROCHLORIDE [Suspect]
     Indication: PRODUCT USED FOR UNKNOWN INDICATION
     Route: 065
  7. COVERSYL [Concomitant]
     Route: 065
  8. DIAMICRON MR [Concomitant]
  9. INSULIN GLARGINE [Concomitant]
  10. METFORMIN HYDROCHLORIDE [Concomitant]
  11. MINAX [Concomitant]
  12. NORVASC [Concomitant]
  13. PANAFCORTELONE [Concomitant]
  14. PENICILLIN NOS [Concomitant]
  15. RANITIDINE [Concomitant]
  16. ALL OTHER THERAPEUTIC PRODUCTS [Concomitant]

REACTIONS (1)
  - Tubulointerstitial nephritis [Recovering/Resolving]
